FAERS Safety Report 8849209 (Version 3)
Quarter: 2013Q2

REPORT INFORMATION
  Report Type: Spontaneous
  Country: US (occurrence: None)
  Receive Date: 20121017
  Receipt Date: 20130401
  Transmission Date: 20140414
  Serious: Yes (Other)
  Sender: FDA-Public Use
  Company Number: TPA2012A07748

PATIENT
  Sex: Female

DRUGS (8)
  1. DEXILANT [Suspect]
     Indication: DIARRHOEA
     Dosage: 60 MG, 1 IN 1 D
     Dates: start: 20100908
  2. DEXILANT [Suspect]
     Indication: DYSPEPSIA
     Dosage: 60 MG, 1 IN 1 D
     Dates: start: 20100908
  3. DEXILANT [Suspect]
     Indication: NAUSEA
     Dosage: 60 MG, 1 IN 1 D
     Dates: start: 20100908
  4. DEXILANT [Suspect]
     Indication: VOMITING
     Dosage: 60 MG, 1 IN 1 D
     Dates: start: 20100908
  5. DEXILANT [Suspect]
     Indication: ABDOMINAL PAIN
     Dosage: 60 MG, 1 IN 1 D
     Dates: start: 20100908
  6. DEXILANT [Suspect]
     Indication: DYSPHAGIA
     Dosage: 60 MG, 1 IN 1 D
     Dates: start: 20100908
  7. DEXILANT [Suspect]
     Indication: ODYNOPHAGIA
     Dosage: 60 MG, 1 IN 1 D
     Dates: start: 20100908
  8. DEXILANT [Suspect]
     Indication: CONSTIPATION
     Dosage: 60 MG, 1 IN 1 D
     Dates: start: 20100908

REACTIONS (2)
  - Stevens-Johnson syndrome [None]
  - Fallopian tube obstruction [None]
